FAERS Safety Report 6839483-6 (Version None)
Quarter: 2010Q3

REPORT INFORMATION
  Report Type: 
  Country: None (occurrence: None)
  Receive Date: 20100714
  Receipt Date: 20090812
  Transmission Date: 20110219
  Serious: No
  Sender: FDA-Public Use
  Company Number: A0801896A

PATIENT
  Sex: Male

DRUGS (4)
  1. FLOVENT [Suspect]
     Indication: EMPHYSEMA
     Dosage: 1PUFF TWICE PER DAY
     Route: 055
  2. ALBUTEROL [Concomitant]
  3. PROAIR HFA [Concomitant]
  4. SPIRIVA [Concomitant]

REACTIONS (2)
  - DRUG DISPENSING ERROR [None]
  - PRODUCT QUALITY ISSUE [None]
